FAERS Safety Report 5844425-6 (Version None)
Quarter: 2008Q3

REPORT INFORMATION
  Report Type: 
  Country: None (occurrence: None)
  Receive Date: 20080811
  Receipt Date: 20080730
  Transmission Date: 20090109
  Serious: Yes (Hospitalization)
  Sender: FDA-Public Use
  Company Number: CIP08001409

PATIENT
  Age: 78 Year
  Sex: Female

DRUGS (7)
  1. ACTONEL [Suspect]
     Indication: OSTEOPOROSIS POSTMENOPAUSAL
     Dosage: 5 MG DAILY, ORAL
     Route: 048
     Dates: end: 20030101
  2. FOSAMAX [Suspect]
     Indication: OSTEOPOROSIS POSTMENOPAUSAL
     Dosage: 70 MG ONCE WEEKLY, ORAL
     Route: 048
     Dates: start: 20030101
  3. NEXIUM [Suspect]
     Indication: GASTROOESOPHAGEAL REFLUX DISEASE
     Dosage: 20 MG DAILY, ORAL
     Route: 048
  4. CALCIMAGON-D3 (CALCIUM CARBONATE, COLECALCIFEROL) [Concomitant]
  5. ATACAND [Concomitant]
  6. FERRUM HAUSMAN / (FERRIC HYDROXIDE POLYMALTOSE COMPLEX) [Concomitant]
  7. FOLIC ACID [Concomitant]

REACTIONS (9)
  - ARTHRALGIA [None]
  - BONE GRAFT [None]
  - FALL [None]
  - FEMUR FRACTURE [None]
  - FRACTURE DELAYED UNION [None]
  - JOINT CREPITATION [None]
  - PAIN IN EXTREMITY [None]
  - PATHOLOGICAL FRACTURE [None]
  - SURGICAL PROCEDURE REPEATED [None]
